FAERS Safety Report 12372145 (Version 2)
Quarter: 2016Q2

REPORT INFORMATION
  Report Type: Spontaneous
  Country: US (occurrence: US)
  Receive Date: 20160516
  Receipt Date: 20160524
  Transmission Date: 20160815
  Serious: Yes (Hospitalization)
  Sender: FDA-Public Use
  Company Number: US-PFIZER INC-2016238699

PATIENT
  Age: 72 Year
  Sex: Female

DRUGS (1)
  1. XALKORI [Suspect]
     Active Substance: CRIZOTINIB
     Indication: METASTATIC SQUAMOUS CELL CARCINOMA
     Dosage: 250 MG, UNK
     Route: 048
     Dates: start: 20160425

REACTIONS (2)
  - Muscular weakness [Unknown]
  - Urinary tract infection [Recovered/Resolved]
